FAERS Safety Report 6568204-X (Version None)
Quarter: 2010Q1

REPORT INFORMATION
  Report Type: 
  Country: None (occurrence: None)
  Receive Date: 20100203
  Receipt Date: 20100121
  Transmission Date: 20100710
  Serious: Yes (Hospitalization)
  Sender: FDA-Public Use
  Company Number: JP-ROCHE-675942

PATIENT
  Sex: Female

DRUGS (8)
  1. TOCILIZUMAB [Suspect]
     Indication: RHEUMATOID ARTHRITIS
     Route: 041
     Dates: start: 20091021, end: 20091021
  2. LOXONIN [Suspect]
     Indication: RHEUMATOID ARTHRITIS
     Dosage: DOSE FORM: ORAL FORMULATION (NOT OTHERWISE SPECIFIED)
     Route: 048
     Dates: start: 20090727, end: 20091105
  3. RIMATIL [Concomitant]
     Route: 048
     Dates: start: 20090904
  4. PREDONINE [Concomitant]
     Route: 048
     Dates: start: 20090904, end: 20091105
  5. FAMOTIDINE [Concomitant]
     Route: 048
     Dates: start: 20090904, end: 20091127
  6. MUCOSTA [Concomitant]
     Dosage: DOSE FORM: ORAL FORMULATION (NOT OTHERWISE SPECIFIED)
     Route: 048
     Dates: start: 20090727, end: 20091105
  7. FRANDOL [Concomitant]
     Route: 048
  8. EVISTA [Concomitant]
     Route: 048

REACTIONS (4)
  - GASTROINTESTINAL HAEMORRHAGE [None]
  - HEPATIC FUNCTION ABNORMAL [None]
  - PLEURISY [None]
  - PNEUMONIA [None]
